FAERS Safety Report 5158506-6 (Version None)
Quarter: 2006Q4

REPORT INFORMATION
  Report Type: 
  Country: None (occurrence: None)
  Receive Date: 20061128
  Receipt Date: 20061005
  Transmission Date: 20070319
  Serious: Yes (Life-Threatening, Hospitalization)
  Sender: FDA-Public Use
  Company Number: 2006CG01640

PATIENT
  Age: 7608 Day
  Sex: Male
  Weight: 75 kg

DRUGS (2)
  1. NEXIUM [Suspect]
     Indication: ABDOMINAL PAIN UPPER
     Route: 048
     Dates: start: 20060701, end: 20060101
  2. GAVISCON [Concomitant]
     Indication: ABDOMINAL PAIN UPPER

REACTIONS (2)
  - HEPATITIS CHOLESTATIC [None]
  - PROTHROMBIN LEVEL DECREASED [None]
